FAERS Safety Report 6475555-6 (Version None)
Quarter: 2009Q4

REPORT INFORMATION
  Report Type: 
  Country: None (occurrence: None)
  Receive Date: 20091204
  Receipt Date: 20091123
  Transmission Date: 20100525
  Serious: Yes (Hospitalization)
  Sender: FDA-Public Use
  Company Number: NL-PFIZER INC-2009285425

PATIENT
  Age: 77 Year
  Sex: Female
  Weight: 60 kg

DRUGS (9)
  1. EXEMESTANE [Suspect]
     Indication: BREAST CANCER
     Dosage: 25 MG, 1X/DAY
     Route: 048
     Dates: start: 20050203
  2. MICARDIS [Concomitant]
     Dosage: UNK
     Route: 048
  3. AMLOR [Concomitant]
     Dosage: UNK
     Route: 048
     Dates: start: 19870101
  4. EMCONCOR [Concomitant]
     Dosage: UNK
     Route: 048
     Dates: start: 19870101, end: 20090928
  5. ASPIRIN [Concomitant]
     Dosage: UNK
     Route: 048
  6. GLUCOPHAGE [Concomitant]
     Dosage: UNK
     Route: 048
  7. DIAMICRON [Concomitant]
     Dosage: UNK
     Route: 048
     Dates: start: 19930101
  8. MOLSIDOMINE [Concomitant]
     Dosage: UNK
     Route: 048
     Dates: start: 20090217
  9. CRESTOR [Concomitant]
     Dosage: UNK
     Route: 048
     Dates: start: 20090217

REACTIONS (1)
  - ATRIAL FIBRILLATION [None]
